FAERS Safety Report 15507095 (Version 3)
Quarter: 2018Q4

REPORT INFORMATION
  Report Type: Spontaneous
  Country: TR (occurrence: TR)
  Receive Date: 20181016
  Receipt Date: 20181025
  Transmission Date: 20190205
  Serious: Yes (Other)
  Sender: FDA-Public Use
  Company Number: PHHY2018TR127402

PATIENT
  Age: 6 Year
  Sex: Male

DRUGS (2)
  1. SERTACONAZOLE [Suspect]
     Active Substance: SERTACONAZOLE
     Indication: TINEA FACIEI
     Dosage: UNK
     Route: 061
  2. LAMISIL [Suspect]
     Active Substance: TERBINAFINE HYDROCHLORIDE
     Indication: TINEA FACIEI
     Dosage: UNK
     Route: 048

REACTIONS (8)
  - Rash pustular [Recovered/Resolved]
  - Rash [Recovered/Resolved]
  - Lymphadenopathy [Recovered/Resolved]
  - Scab [Recovering/Resolving]
  - Pyrexia [Unknown]
  - Blister [Unknown]
  - Kaposi^s varicelliform eruption [Recovered/Resolved]
  - Pruritus [Recovering/Resolving]
